FAERS Safety Report 11897946 (Version 1)
Quarter: 2016Q1

REPORT INFORMATION
  Report Type: Spontaneous
  Country: US (occurrence: None)
  Receive Date: 20160107
  Receipt Date: 20160107
  Transmission Date: 20160526
  Serious: Yes (Hospitalization)
  Sender: FDA-Public Use
  Company Number: None

PATIENT
  Age: 63 Year
  Sex: Male

DRUGS (2)
  1. WARFARIN [Suspect]
     Active Substance: WARFARIN
     Indication: DEEP VEIN THROMBOSIS
     Route: 048
     Dates: start: 20151214, end: 20151228
  2. ENOXAPARIN (GENERIC) [Suspect]
     Active Substance: ENOXAPARIN
     Indication: DEEP VEIN THROMBOSIS
     Route: 058
     Dates: start: 20151208, end: 20151229

REACTIONS (5)
  - Haemorrhage urinary tract [None]
  - International normalised ratio increased [None]
  - Tachycardia [None]
  - Abdominal pain [None]
  - Rectal haemorrhage [None]

NARRATIVE: CASE EVENT DATE: 20151229
